FAERS Safety Report 16372067 (Version 1)
Quarter: 2019Q2

REPORT INFORMATION
  Report Type: Spontaneous
  Country: US (occurrence: US)
  Receive Date: 20190424
  Receipt Date: 20190424
  Transmission Date: 20190711
  Serious: Yes (Hospitalization)
  Sender: FDA-Public Use
  Company Number: None

PATIENT
  Age: 76 Year
  Sex: Male
  Weight: 93.98 kg

DRUGS (1)
  1. PAROXETINE. [Suspect]
     Active Substance: PAROXETINE
     Indication: DEPRESSION
     Route: 048
     Dates: start: 20190329, end: 20190402

REACTIONS (5)
  - Fall [None]
  - Head injury [None]
  - Syncope [None]
  - Dizziness [None]
  - Skin laceration [None]

NARRATIVE: CASE EVENT DATE: 20190402
